FAERS Safety Report 7470563-0 (Version None)
Quarter: 2011Q2

REPORT INFORMATION
  Report Type: 
  Country: None (occurrence: None)
  Receive Date: 20110510
  Receipt Date: 20110422
  Transmission Date: 20111010
  Serious: No
  Sender: FDA-Public Use
  Company Number: US-B.I. PHARMACEUTICALS,INC./RIDGEFIELD-2011-BP-03822BP

PATIENT
  Sex: Female

DRUGS (9)
  1. ASPIRIN [Concomitant]
     Dosage: 80 MG
  2. PRADAXA [Suspect]
     Indication: ATRIAL FIBRILLATION
     Dosage: 150 MG
     Route: 048
     Dates: start: 20101210
  3. PRAVASTATIN [Concomitant]
     Dosage: 20 MG
  4. FISH OIL [Concomitant]
  5. ADULT SENIOR MULTIVITAMIN [Concomitant]
  6. PRADAXA [Suspect]
     Indication: TRANSIENT ISCHAEMIC ATTACK
  7. GARLIC [Concomitant]
  8. TRICOR [Concomitant]
  9. METOPROLOL SUCCINATE [Concomitant]

REACTIONS (2)
  - GASTROOESOPHAGEAL REFLUX DISEASE [None]
  - DIZZINESS [None]
